FAERS Safety Report 7858548-3 (Version None)
Quarter: 2011Q4

REPORT INFORMATION
  Report Type: 
  Country: None (occurrence: None)
  Receive Date: 20111027
  Receipt Date: 20111017
  Transmission Date: 20120403
  Serious: Yes (Hospitalization)
  Sender: FDA-Public Use
  Company Number: CA-JNJFOC-20100700867

PATIENT
  Sex: Male
  Weight: 104 kg

DRUGS (9)
  1. USTEKINUMAB [Suspect]
     Route: 058
     Dates: start: 20061020
  2. USTEKINUMAB [Suspect]
     Route: 058
     Dates: start: 20100719
  3. USTEKINUMAB [Suspect]
     Indication: PSORIASIS
     Route: 058
     Dates: start: 20101019
  4. LANTUS [Concomitant]
     Indication: DIABETES MELLITUS
     Route: 058
     Dates: start: 20100415
  5. GLYBURIDE [Concomitant]
     Route: 048
     Dates: start: 20100219
  6. PLACEBO [Suspect]
     Route: 058
     Dates: start: 20061020
  7. PLACEBO [Suspect]
     Route: 058
     Dates: start: 20101019
  8. PLACEBO [Suspect]
     Indication: PSORIASIS
     Route: 058
     Dates: start: 20100719
  9. SYNTHROID [Concomitant]
     Indication: HYPERTHYROIDISM
     Route: 042
     Dates: start: 20060101

REACTIONS (1)
  - LYMPHOID TISSUE HYPERPLASIA [None]
